FAERS Safety Report 4325807-0 (Version None)
Quarter: 2004Q1

REPORT INFORMATION
  Report Type: 
  Country: None (occurrence: None)
  Receive Date: 20040323
  Receipt Date: 20040308
  Transmission Date: 20041129
  Serious: Yes (Other)
  Sender: FDA-Public Use
  Company Number: 2004-06790

PATIENT
  Age: 49 Year
  Sex: Male
  Weight: 116.5744 kg

DRUGS (5)
  1. EMTRICITABINE [Suspect]
     Indication: HIV INFECTION
     Dosage: 200 MG QD PO
     Route: 048
     Dates: start: 20010228
  2. AZT [Concomitant]
  3. SUSTIVA [Concomitant]
  4. MONOPRIL [Concomitant]
  5. HYDROCHLOROTHIAZIDE [Concomitant]

REACTIONS (6)
  - BLOOD TRIGLYCERIDES INCREASED [None]
  - GLUCOSE URINE PRESENT [None]
  - GLYCOSYLATED HAEMOGLOBIN INCREASED [None]
  - HYPERGLYCAEMIA [None]
  - POLLAKIURIA [None]
  - THIRST [None]
